FAERS Safety Report 17090449 (Version 1)
Quarter: 2019Q4

REPORT INFORMATION
  Report Type: Spontaneous
  Country: US (occurrence: US)
  Receive Date: 20191129
  Receipt Date: 20191129
  Transmission Date: 20200122
  Serious: No
  Sender: FDA-Public Use
  Company Number: US-UCBSA-2018024447

PATIENT
  Sex: Female

DRUGS (3)
  1. DIVALPROEX [Suspect]
     Active Substance: DIVALPROEX SODIUM
     Dosage: 250 MG, 3X/DAY (TID)
     Route: 048
     Dates: start: 20180417
  2. KEPPRA [Suspect]
     Active Substance: LEVETIRACETAM
     Indication: SEIZURE
     Dosage: 5 ML, 2X/DAY (BID)
     Route: 048
  3. DIVALPROEX [Suspect]
     Active Substance: DIVALPROEX SODIUM
     Indication: PRODUCT USED FOR UNKNOWN INDICATION
     Dosage: 125 MG, 3X/DAY (TID)
     Route: 048
     Dates: start: 20180410

REACTIONS (4)
  - Abdominal pain upper [Not Recovered/Not Resolved]
  - Urticaria [Not Recovered/Not Resolved]
  - Seizure [Not Recovered/Not Resolved]
  - Headache [Not Recovered/Not Resolved]

NARRATIVE: CASE EVENT DATE: 2018
